FAERS Safety Report 25907643 (Version 1)
Quarter: 2025Q4

REPORT INFORMATION
  Report Type: Spontaneous
  Country: US (occurrence: None)
  Receive Date: 20251009
  Receipt Date: 20251009
  Transmission Date: 20260117
  Serious: No
  Sender: FDA-CTU
  Company Number: None

PATIENT

DRUGS (1)
  1. SODIUM FLUORIDE [Suspect]
     Active Substance: SODIUM FLUORIDE
     Dosage: OTHER STRENGTH : 3X MORE PLAQUE REM;?

REACTIONS (11)
  - Oral pain [None]
  - Lip swelling [None]
  - Swollen tongue [None]
  - Tongue blistering [None]
  - Obstructive airways disorder [None]
  - Ageusia [None]
  - Gingival swelling [None]
  - Burning sensation [None]
  - Lip pain [None]
  - Oral discomfort [None]
  - Feeling abnormal [None]

NARRATIVE: CASE EVENT DATE: 20250726
